FAERS Safety Report 15076409 (Version 2)
Quarter: 2018Q3

REPORT INFORMATION
  Report Type: Spontaneous
  Country: US (occurrence: US)
  Receive Date: 20180627
  Receipt Date: 20180720
  Transmission Date: 20181010
  Serious: Yes (Other)
  Sender: FDA-Public Use
  Company Number: US-APOTEX-2018AP015990

PATIENT
  Age: 73 Year
  Sex: Female

DRUGS (1)
  1. FLUTICASONE PROPIONATE. [Suspect]
     Active Substance: FLUTICASONE PROPIONATE
     Indication: NASAL CONGESTION
     Dosage: ONE SPRAY, BID, LEFT NOSTRIL
     Route: 050
     Dates: start: 20180619, end: 20180619

REACTIONS (3)
  - Rhinorrhoea [Not Recovered/Not Resolved]
  - Epistaxis [Recovered/Resolved]
  - Nasal injury [Unknown]

NARRATIVE: CASE EVENT DATE: 20180619
